FAERS Safety Report 8130140-5 (Version None)
Quarter: 2012Q1

REPORT INFORMATION
  Report Type: 
  Country: None (occurrence: None)
  Receive Date: 20120210
  Receipt Date: 20120208
  Transmission Date: 20120608
  Serious: Yes (Congenital Anomaly, Other)
  Sender: FDA-Public Use
  Company Number: FR-ABBOTT-11P-056-0841403-00

PATIENT
  Sex: Male

DRUGS (8)
  1. BACTRIM [Suspect]
     Indication: MATERNAL EXPOSURE TIMING UNSPECIFIED
     Route: 064
  2. RIFABUTIN [Suspect]
     Indication: MATERNAL EXPOSURE TIMING UNSPECIFIED
     Route: 064
  3. RIMIFON [Suspect]
     Indication: MATERNAL EXPOSURE TIMING UNSPECIFIED
     Route: 064
  4. VALGANCICLOVIR [Suspect]
     Indication: MATERNAL EXPOSURE TIMING UNSPECIFIED
     Route: 064
  5. KALETRA [Suspect]
     Indication: MATERNAL EXPOSURE TIMING UNSPECIFIED
     Route: 064
  6. CLARITHROMYCIN [Suspect]
     Indication: MATERNAL EXPOSURE TIMING UNSPECIFIED
     Route: 064
  7. MYAMBUTOL [Suspect]
     Indication: MATERNAL EXPOSURE TIMING UNSPECIFIED
     Route: 064
  8. TRUVADA [Suspect]
     Indication: MATERNAL EXPOSURE TIMING UNSPECIFIED
     Route: 064

REACTIONS (15)
  - MICROTIA [None]
  - ATRIAL SEPTAL DEFECT [None]
  - KIDNEY MALFORMATION [None]
  - AORTICOPULMONARY SEPTAL DEFECT [None]
  - CHARGE SYNDROME [None]
  - FOETAL EXPOSURE DURING PREGNANCY [None]
  - OESOPHAGEAL ATRESIA [None]
  - POLYDACTYLY [None]
  - HEART DISEASE CONGENITAL [None]
  - CONGENITAL ENDOCRINE ANOMALY [None]
  - EAR MALFORMATION [None]
  - VENTRICULAR SEPTAL DEFECT [None]
  - ECTOPIA CORDIS [None]
  - HYPOSPADIAS [None]
  - CONGENITAL AORTIC ATRESIA [None]
